FAERS Safety Report 23681642 (Version 1)
Quarter: 2024Q1

REPORT INFORMATION
  Report Type: Spontaneous
  Country: CN (occurrence: CN)
  Receive Date: 20240328
  Receipt Date: 20240328
  Transmission Date: 20240410
  Serious: Yes (Other)
  Sender: FDA-Public Use
  Company Number: CN-ASTELLAS-2024US008151

PATIENT
  Age: 47 Year
  Sex: Female

DRUGS (11)
  1. ISAVUCONAZOLE [Suspect]
     Active Substance: ISAVUCONAZOLE
     Indication: Aspergillus infection
     Route: 041
     Dates: start: 20221015, end: 20221016
  2. ISAVUCONAZOLE [Suspect]
     Active Substance: ISAVUCONAZOLE
     Route: 041
     Dates: start: 20221017, end: 20221018
  3. ISAVUCONAZOLE [Suspect]
     Active Substance: ISAVUCONAZOLE
     Indication: Aspergillus infection
     Dosage: 100 MG, ONCE DAILY (VIA GASTRIC TUBE INJECTION)
     Route: 065
     Dates: start: 20221022
  4. CASPOFUNGIN [Suspect]
     Active Substance: CASPOFUNGIN
     Indication: Aspergillus infection
     Dosage: 70 MG, UNKNOWN FREQ. (LOADING DOSE)
     Route: 041
     Dates: start: 20221022
  5. CASPOFUNGIN [Suspect]
     Active Substance: CASPOFUNGIN
     Dosage: 50 MG, UNKNOWN FREQ. (MAINTENANCE DOSE)
     Route: 041
  6. CEFOPERAZONE\SULBACTAM [Concomitant]
     Active Substance: CEFOPERAZONE\SULBACTAM
     Indication: Infection
     Dosage: UNK UNK, UNKNOWN FREQ.
     Route: 065
  7. ACETYLCYSTEINE [Concomitant]
     Active Substance: ACETYLCYSTEINE
     Indication: Product used for unknown indication
     Dosage: UNK UNK, UNKNOWN FREQ.
     Route: 065
  8. ORNITHINE ASPARTATE [Concomitant]
     Active Substance: ORNITHINE ASPARTATE
     Indication: Product used for unknown indication
     Dosage: UNK UNK, UNKNOWN FREQ.
     Route: 065
  9. ADEMETIONINE BUTANEDISULFONATE [Concomitant]
     Active Substance: ADEMETIONINE BUTANEDISULFONATE
     Indication: Product used for unknown indication
     Dosage: UNK UNK, UNKNOWN FREQ.
     Route: 065
  10. OMEPRAZOLE [Concomitant]
     Active Substance: OMEPRAZOLE
     Indication: Product used for unknown indication
     Dosage: UNK UNK, UNKNOWN FREQ.
     Route: 065
  11. LACTULOSE [Concomitant]
     Active Substance: LACTULOSE
     Indication: Product used for unknown indication
     Dosage: UNK UNK, UNKNOWN FREQ.
     Route: 065

REACTIONS (6)
  - Face oedema [Unknown]
  - Oedema peripheral [Unknown]
  - Underdose [Unknown]
  - Off label use [Unknown]
  - Off label use [Unknown]
  - Intentional product use issue [Unknown]

NARRATIVE: CASE EVENT DATE: 20221015
